FAERS Safety Report 22038011 (Version 1)
Quarter: 2023Q1

REPORT INFORMATION
  Report Type: Spontaneous
  Country: DE (occurrence: DE)
  Receive Date: 20230227
  Receipt Date: 20230227
  Transmission Date: 20230417
  Serious: Yes (Hospitalization, Other)
  Sender: FDA-Public Use
  Company Number: DE-SUN PHARMACEUTICAL INDUSTRIES LTD-2023RR-379901

PATIENT
  Age: 85 Year
  Sex: Male

DRUGS (1)
  1. GABAPENTIN [Suspect]
     Active Substance: GABAPENTIN
     Indication: Neuralgia
     Dosage: 300 MILLIGRAM, DAILY
     Route: 065

REACTIONS (4)
  - Overdose [Unknown]
  - Syncope [Recovered/Resolved]
  - Blood pressure systolic decreased [Recovered/Resolved]
  - Drug level increased [Recovered/Resolved]
